FAERS Safety Report 8002256-5 (Version None)
Quarter: 2011Q4

REPORT INFORMATION
  Report Type: 
  Country: None (occurrence: None)
  Receive Date: 20111222
  Receipt Date: 20110124
  Transmission Date: 20120403
  Serious: No
  Sender: FDA-Public Use
  Company Number: US-GLAXOSMITHKLINE-A0908576A

PATIENT
  Age: 51 Year
  Sex: Female

DRUGS (2)
  1. NICOTINE POLACRILEX [Suspect]
     Indication: EX-TOBACCO USER
     Dates: start: 20110111
  2. NICORETTE (MINT) [Suspect]
     Indication: EX-TOBACCO USER

REACTIONS (2)
  - DIZZINESS [None]
  - DRUG INEFFECTIVE [None]
